FAERS Safety Report 6636414-9 (Version None)
Quarter: 2010Q1

REPORT INFORMATION
  Report Type: 
  Country: None (occurrence: None)
  Receive Date: 20100226
  Receipt Date: 20090924
  Transmission Date: 20100710
  Serious: Yes (Other)
  Sender: FDA-Public Use
  Company Number: WAES 0909USA04938

PATIENT
  Age: 79 Year
  Sex: Female

DRUGS (3)
  1. PRINIVIL [Suspect]
     Dosage: PO
     Route: 048
  2. PLAVIX [Suspect]
     Dosage: 75 MG/DAILY
     Dates: start: 20090701
  3. VITAMINS (UNSPECIFIED) [Concomitant]

REACTIONS (4)
  - ASTHENIA [None]
  - BONE PAIN [None]
  - DIZZINESS [None]
  - SWOLLEN TONGUE [None]
